FAERS Safety Report 11586680 (Version 4)
Quarter: 2016Q4

REPORT INFORMATION
  Report Type: Spontaneous
  Country: US (occurrence: US)
  Receive Date: 20151001
  Receipt Date: 20161003
  Transmission Date: 20170206
  Serious: No
  Sender: FDA-Public Use
  Company Number: US-PFIZER INC-2015319444

PATIENT
  Age: 63 Year
  Sex: Female

DRUGS (1)
  1. RELPAX [Suspect]
     Active Substance: ELETRIPTAN HYDROBROMIDE
     Indication: HEADACHE
     Dosage: 40 MG, UNK(IF NO RESPONSE REPEAT ONCE AFTER 2 HRS/MAX)

REACTIONS (3)
  - Headache [Recovering/Resolving]
  - Disturbance in attention [Unknown]
  - Malaise [Unknown]
